FAERS Safety Report 14056773 (Version 1)
Quarter: 2017Q4

REPORT INFORMATION
  Report Type: Spontaneous
  Country: GB (occurrence: GB)
  Receive Date: 20171006
  Receipt Date: 20171006
  Transmission Date: 20180321
  Serious: Yes (Other)
  Sender: FDA-Public Use
  Company Number: GB-PFIZER INC-2017425393

PATIENT
  Age: 63 Year
  Sex: Male

DRUGS (3)
  1. KETAMINE HCL [Suspect]
     Active Substance: KETAMINE HYDROCHLORIDE
     Dosage: 20 MG, UNK
     Route: 042
     Dates: start: 20170623
  2. KETAMINE HCL [Suspect]
     Active Substance: KETAMINE HYDROCHLORIDE
     Dosage: 30 MG, UNK
     Route: 042
     Dates: start: 20170623
  3. KETAMINE HCL [Suspect]
     Active Substance: KETAMINE HYDROCHLORIDE
     Indication: PAIN
     Dosage: 50 MG, UNK
     Route: 042
     Dates: start: 20170623

REACTIONS (4)
  - Pulse absent [Recovered/Resolved]
  - Unresponsive to stimuli [Unknown]
  - Respiratory arrest [Recovered/Resolved]
  - Extravasation [Unknown]

NARRATIVE: CASE EVENT DATE: 20170623
